FAERS Safety Report 21970901 (Version 2)
Quarter: 2023Q1

REPORT INFORMATION
  Report Type: Spontaneous
  Country: JP (occurrence: JP)
  Receive Date: 20230209
  Receipt Date: 20230223
  Transmission Date: 20230418
  Serious: Yes (Death, Other)
  Sender: FDA-Public Use
  Company Number: JP-ABBVIE-4202602

PATIENT
  Age: 50 Year
  Sex: Female
  Weight: 50 kg

DRUGS (6)
  1. HUMIRA [Suspect]
     Active Substance: ADALIMUMAB
     Indication: Juvenile idiopathic arthritis
     Dosage: FORM STRENGTH- 40 MG
     Route: 058
     Dates: start: 20191015
  2. HUMIRA [Suspect]
     Active Substance: ADALIMUMAB
     Route: 058
     Dates: start: 20171115, end: 20171128
  3. HUMIRA [Suspect]
     Active Substance: ADALIMUMAB
     Route: 058
     Dates: start: 20171129, end: 20171212
  4. HUMIRA [Suspect]
     Active Substance: ADALIMUMAB
     Route: 058
     Dates: start: 20171213, end: 20191014
  5. PREDNISOLONE [Suspect]
     Active Substance: PREDNISOLONE
     Indication: Juvenile idiopathic arthritis
     Dosage: 25 MG
     Route: 048
     Dates: start: 20200222, end: 20200226
  6. PREDNISOLONE [Suspect]
     Active Substance: PREDNISOLONE
     Indication: Juvenile idiopathic arthritis
     Dosage: 10 MG
     Route: 048
     Dates: end: 20200221

REACTIONS (7)
  - Suspected COVID-19 [Fatal]
  - Pneumonia [Fatal]
  - Incorrect dose administered [Unknown]
  - Juvenile idiopathic arthritis [Not Recovered/Not Resolved]
  - Infection susceptibility increased [Unknown]
  - Shock [Unknown]
  - Cardio-respiratory arrest [Unknown]

NARRATIVE: CASE EVENT DATE: 20181129
